FAERS Safety Report 6835575-6 (Version None)
Quarter: 2010Q3

REPORT INFORMATION
  Report Type: 
  Country: None (occurrence: None)
  Receive Date: 20100713
  Receipt Date: 20100701
  Transmission Date: 20110219
  Serious: Yes (Hospitalization, Other)
  Sender: FDA-Public Use
  Company Number: US-ELI_LILLY_AND_COMPANY-US201006002146

PATIENT
  Sex: Female

DRUGS (11)
  1. FORTEO [Suspect]
     Indication: OSTEOPOROSIS
     Dosage: 20 UG, DAILY (1/D)
     Dates: start: 20090920
  2. FORTEO [Suspect]
     Dosage: 20 UG, DAILY (1/D)
  3. COUMADIN [Concomitant]
     Dosage: UNK, DAILY (1/D)
  4. CRESTOR [Concomitant]
     Dosage: UNK, DAILY (1/D)
  5. TOPROL-XL [Concomitant]
     Dosage: UNK, DAILY (1/D)
  6. MULTIVITAMIN [Concomitant]
     Dosage: UNK, DAILY (1/D)
  7. CO-Q10 [Concomitant]
     Dosage: UNK, DAILY (1/D)
  8. VITAMIN TAB [Concomitant]
     Dosage: UNK, DAILY (1/D)
  9. CALCIUM [Concomitant]
     Dosage: UNK, DAILY (1/D)
  10. PERCOCET [Concomitant]
     Dosage: UNK, AS NEEDED
  11. BETADINE /00080001/ [Concomitant]
     Dosage: 1 D/F, UNKNOWN
     Route: 061

REACTIONS (9)
  - ARTHRALGIA [None]
  - ARTHROPATHY [None]
  - BLISTER [None]
  - FALL [None]
  - GAIT DISTURBANCE [None]
  - HYPERSENSITIVITY [None]
  - JOINT INJURY [None]
  - POST PROCEDURAL COMPLICATION [None]
  - RESTLESS LEGS SYNDROME [None]
